FAERS Safety Report 14949236 (Version 1)
Quarter: 2018Q2

REPORT INFORMATION
  Report Type: Spontaneous
  Country: AU (occurrence: AU)
  Receive Date: 20180529
  Receipt Date: 20180529
  Transmission Date: 20180711
  Serious: Yes (Other)
  Sender: FDA-Public Use
  Company Number: AU-GLAXOSMITHKLINE-AU2018093720

PATIENT
  Age: 7 Year
  Sex: Male

DRUGS (1)
  1. HYOSCINE HYDROBROMIDE [Suspect]
     Active Substance: SCOPOLAMINE
     Indication: PRODUCT USED FOR UNKNOWN INDICATION
     Dosage: 3.9 MG, UNK
     Route: 048

REACTIONS (4)
  - Aggression [Recovered/Resolved]
  - Paranoia [Recovered/Resolved]
  - Toxicity to various agents [Recovered/Resolved]
  - Hallucination [Recovered/Resolved]
